FAERS Safety Report 21756117 (Version 1)
Quarter: 2022Q4

REPORT INFORMATION
  Report Type: Spontaneous
  Country: US (occurrence: None)
  Receive Date: 20221219
  Receipt Date: 20221219
  Transmission Date: 20230113
  Serious: No
  Sender: FDA-Public Use
  Company Number: None

PATIENT
  Sex: Female

DRUGS (3)
  1. GLATIRAMER ACETATE [Suspect]
     Active Substance: GLATIRAMER ACETATE
     Indication: Multiple sclerosis
     Dosage: FREQUENCY : 3 TIMES A WEEK;?
     Route: 058
     Dates: start: 202207
  2. ACCUTANE [Concomitant]
     Active Substance: ISOTRETINOIN
  3. AMANTADINE [Concomitant]
     Active Substance: AMANTADINE

REACTIONS (5)
  - Generalised tonic-clonic seizure [None]
  - Dry eye [None]
  - Dysphagia [None]
  - Weight decreased [None]
  - Disease progression [None]
